FAERS Safety Report 5022256-7 (Version None)
Quarter: 2006Q2

REPORT INFORMATION
  Report Type: 
  Country: None (occurrence: None)
  Receive Date: 20060609
  Receipt Date: 20060511
  Transmission Date: 20061013
  Serious: Yes (Life-Threatening, Hospitalization)
  Sender: FDA-Public Use
  Company Number: DE-MERCK-0605DEU00102

PATIENT
  Age: 78 Year
  Sex: Female
  Weight: 60 kg

DRUGS (5)
  1. ZOCOR [Suspect]
     Indication: HYPERCHOLESTEROLAEMIA
     Route: 048
     Dates: start: 20050501, end: 20050711
  2. ASPIRIN [Concomitant]
     Route: 048
     Dates: start: 20010101, end: 20050711
  3. BUDESONIDE [Concomitant]
     Route: 055
     Dates: start: 19950101
  4. FORMOTEROL FUMARATE [Concomitant]
     Route: 055
     Dates: start: 19950101
  5. HYDROCHLOROTHIAZIDE AND VALSARTAN [Concomitant]
     Route: 048
     Dates: start: 20000101, end: 20050720

REACTIONS (1)
  - APLASTIC ANAEMIA [None]
